FAERS Safety Report 9864218 (Version 2)
Quarter: 2014Q1

REPORT INFORMATION
  Report Type: Report from Study
  Country: GB (occurrence: GB)
  Receive Date: 20140203
  Receipt Date: 20140228
  Transmission Date: 20141002
  Serious: Yes (Other)
  Sender: FDA-Public Use
  Company Number: GB-BAXTER-2014BAX005483

PATIENT
  Sex: Female

DRUGS (5)
  1. IFOSFAMIDE 40 MG/ML SOLUTION FOR INFUSION [Suspect]
     Indication: SARCOMA
     Route: 042
  2. MESNA INJECTION [Suspect]
     Indication: TOXICITY TO VARIOUS AGENTS
     Route: 042
  3. MESNA TABLETS 600 MG [Suspect]
     Indication: TOXICITY TO VARIOUS AGENTS
     Route: 048
  4. THIAMINE [Suspect]
     Indication: PROPHYLAXIS
     Route: 065
  5. METOCLOPRAMIDE [Suspect]
     Indication: NAUSEA
     Route: 065

REACTIONS (1)
  - Encephalopathy [Unknown]
